FAERS Safety Report 22111042 (Version 1)
Quarter: 2023Q1

REPORT INFORMATION
  Report Type: Report from Study
  Country: BG (occurrence: BG)
  Receive Date: 20230317
  Receipt Date: 20230317
  Transmission Date: 20230418
  Serious: Yes (Hospitalization)
  Sender: FDA-Public Use
  Company Number: BG-AKCEA THERAPEUTICS, INC.-2023IS001056

PATIENT

DRUGS (10)
  1. TEGSEDI [Suspect]
     Active Substance: INOTERSEN SODIUM
     Indication: Product used for unknown indication
     Dosage: UNK UNK, QW
     Route: 058
     Dates: start: 2022
  2. VITAMIN A [Concomitant]
     Active Substance: VITAMIN A
     Indication: Product used for unknown indication
     Dosage: 1 TAB
     Route: 065
  3. DULOXETINE HYDROCHLORIDE [Concomitant]
     Active Substance: DULOXETINE HYDROCHLORIDE
     Indication: Agitated depression
     Dosage: 30 MILLIGRAM, 1 TAB
     Route: 065
  4. MIDODRINE HYDROCHLORIDE [Concomitant]
     Active Substance: MIDODRINE HYDROCHLORIDE
     Indication: Orthostatic hypotension
     Dosage: 2.5 MILLIGRAM-3, 1 TAB
     Route: 065
  5. METOPROLOL SUCCINATE [Concomitant]
     Active Substance: METOPROLOL SUCCINATE
     Indication: Cardiac failure chronic
     Dosage: 5 MILLIGRAM, HLAF TAB
     Route: 065
  6. METOPROLOL SUCCINATE [Concomitant]
     Active Substance: METOPROLOL SUCCINATE
     Dosage: 50 MILLIGRAM, 1/2 TAB
     Route: 065
  7. PREGABALIN [Concomitant]
     Active Substance: PREGABALIN
     Indication: Anxiety
     Dosage: 75 MILLIGRAM, 1 TAB
     Route: 065
  8. HYDROXYZINE HYDROCHLORIDE [Concomitant]
     Active Substance: HYDROXYZINE HYDROCHLORIDE
     Indication: Product used for unknown indication
     Dosage: 1 TAB
     Route: 065
  9. METILDIGOXIN [Concomitant]
     Active Substance: METILDIGOXIN
     Indication: Product used for unknown indication
     Dosage: 0.1, 1 TAB
     Route: 065
  10. ELIQUIS [Concomitant]
     Active Substance: APIXABAN
     Indication: Thrombosis
     Dosage: 2.5, 1 TAB
     Route: 065

REACTIONS (7)
  - Nausea [Unknown]
  - Slow speech [Unknown]
  - Hypoaesthesia [Unknown]
  - Dyspnoea [Recovered/Resolved]
  - Chills [Recovered/Resolved]
  - Feeling cold [Unknown]
  - Hypersensitivity [Unknown]

NARRATIVE: CASE EVENT DATE: 20230112
